FAERS Safety Report 9059229 (Version 1)
Quarter: 2013Q1

REPORT INFORMATION
  Report Type: Spontaneous
  Country: JP (occurrence: JP)
  Receive Date: 20130211
  Receipt Date: 20130211
  Transmission Date: 20140127
  Serious: Yes (Hospitalization, Disabling, Other)
  Sender: FDA-Public Use
  Company Number: JP-ASTRAZENECA-2013SE05262

PATIENT
  Age: 31 Year
  Sex: Male

DRUGS (3)
  1. DIPRIVAN [Suspect]
     Indication: SEDATION
     Dosage: GENERIC, 1500 MG, UNKNOWN
     Route: 042
  2. BUSCOPAN [Concomitant]
  3. SOSEGON [Concomitant]

REACTIONS (10)
  - Hyperthermia malignant [Unknown]
  - Cerebral infarction [Unknown]
  - Spinal cord infarction [Unknown]
  - Pulmonary oedema [Unknown]
  - Acidosis [Unknown]
  - Blood creatine phosphokinase increased [Unknown]
  - Dehydration [Unknown]
  - Hyperhidrosis [Unknown]
  - Muscular weakness [Unknown]
  - Blood pressure decreased [Unknown]
